FAERS Safety Report 9880280 (Version 1)
Quarter: 2014Q1

REPORT INFORMATION
  Report Type: Report from Study
  Country: DE (occurrence: DE)
  Receive Date: 20140207
  Receipt Date: 20140207
  Transmission Date: 20141002
  Serious: Yes (Other)
  Sender: FDA-Public Use
  Company Number: DE-ROCHE-1341465

PATIENT
  Age: 51 Year
  Sex: Male
  Weight: 66 kg

DRUGS (13)
  1. CAPECITABINE [Suspect]
     Indication: COLORECTAL CANCER METASTATIC
     Route: 065
     Dates: start: 20131219, end: 20140101
  2. CAPECITABINE [Suspect]
     Route: 065
     Dates: start: 20140108, end: 20140122
  3. BEVACIZUMAB [Suspect]
     Indication: COLORECTAL CANCER METASTATIC
     Route: 065
     Dates: start: 201202, end: 201206
  4. MITOMYCIN [Concomitant]
     Indication: COLORECTAL CANCER METASTATIC
     Dosage: 15MG
     Route: 042
     Dates: start: 20131218
  5. FLUOROURACIL [Concomitant]
     Indication: COLORECTAL CANCER METASTATIC
     Route: 065
     Dates: start: 201210, end: 201304
  6. FLUOROURACIL [Concomitant]
     Route: 065
     Dates: start: 201304, end: 201309
  7. FOLINIC ACID [Concomitant]
     Indication: COLORECTAL CANCER METASTATIC
     Route: 065
     Dates: start: 201210, end: 201304
  8. FOLINIC ACID [Concomitant]
     Route: 065
     Dates: start: 201304, end: 201309
  9. METOCLOPRAMIDE [Concomitant]
     Route: 065
  10. VERGENTAN [Concomitant]
     Dosage: 2 AMPOULES
     Route: 065
  11. DEXAMETHASON [Concomitant]
     Route: 065
  12. IRINOTECAN [Concomitant]
     Indication: COLORECTAL CANCER METASTATIC
     Route: 065
     Dates: start: 201201, end: 201210
  13. OXALIPLATIN [Concomitant]
     Indication: COLORECTAL CANCER METASTATIC
     Route: 065
     Dates: start: 201304, end: 201309

REACTIONS (5)
  - Diarrhoea [Recovered/Resolved]
  - Sepsis [Recovered/Resolved]
  - Prerenal failure [Recovered/Resolved]
  - Malignant neoplasm progression [Recovered/Resolved]
  - Venous thrombosis limb [Unknown]
